FAERS Safety Report 6767312-8 (Version None)
Quarter: 2010Q2

REPORT INFORMATION
  Report Type: 
  Country: None (occurrence: None)
  Receive Date: 20100614
  Receipt Date: 20100608
  Transmission Date: 20101027
  Serious: Yes (Other)
  Sender: FDA-Public Use
  Company Number: US-BAYER-201016514BCC

PATIENT
  Age: 62 Year
  Sex: Male
  Weight: 82 kg

DRUGS (10)
  1. ALEVE [Suspect]
     Indication: ARTHRALGIA
     Dosage: TOTAL DAILY DOSE: 880 MG  UNIT DOSE: 220 MG
     Route: 048
     Dates: start: 20100526, end: 20100601
  2. STRATTERA [Concomitant]
     Route: 065
  3. LISINOPRIL [Concomitant]
     Route: 065
  4. LUPRON [Concomitant]
     Route: 065
  5. VITAMIN D [Concomitant]
     Route: 065
  6. VITAMIN E [Concomitant]
     Route: 065
  7. FISH OIL [Concomitant]
     Route: 065
  8. CALCIUM CARBONATE [Concomitant]
     Route: 065
  9. CHROMIUM [Concomitant]
     Route: 065
  10. CRANBERRY EXTRACT [Concomitant]
     Route: 065

REACTIONS (1)
  - HAEMATOCHEZIA [None]
